FAERS Safety Report 7626234-0 (Version None)
Quarter: 2011Q3

REPORT INFORMATION
  Report Type: 
  Country: None (occurrence: None)
  Receive Date: 20110721
  Receipt Date: 20110714
  Transmission Date: 20111222
  Serious: Yes (Hospitalization)
  Sender: FDA-Public Use
  Company Number: AU-PFIZER INC-2005131176

PATIENT
  Age: 42 Year
  Sex: Male

DRUGS (8)
  1. MAXOLON [Concomitant]
     Route: 048
     Dates: start: 20040727
  2. PROCTOSEDYL ^HOECHST^ [Concomitant]
     Route: 061
     Dates: start: 20041129
  3. DIFFLAM [Concomitant]
     Route: 048
     Dates: start: 20040729
  4. SUNITINIB MALATE [Suspect]
     Indication: RENAL CELL CARCINOMA
     Dosage: 50 MG, 1X/DAY
     Route: 048
     Dates: start: 20050415, end: 20050916
  5. METOPROLOL TARTRATE [Concomitant]
     Route: 048
     Dates: start: 20050111
  6. ZOLOFT [Concomitant]
     Route: 048
     Dates: start: 20020201
  7. FAMVIR [Concomitant]
     Route: 048
     Dates: start: 20050104
  8. OMEPRAZOLE [Concomitant]
     Route: 048
     Dates: start: 20041011

REACTIONS (1)
  - LOWER RESPIRATORY TRACT INFECTION [None]
